FAERS Safety Report 16010625 (Version 1)
Quarter: 2019Q1

REPORT INFORMATION
  Report Type: Spontaneous
  Country: AT (occurrence: AT)
  Receive Date: 20190225
  Receipt Date: 20190225
  Transmission Date: 20190418
  Serious: Yes (Other)
  Sender: FDA-Public Use
  Company Number: AT-009507513-1902AUT010090

PATIENT
  Sex: Female

DRUGS (2)
  1. DORZOLAMIDE HYDROCHLORIDE. [Suspect]
     Active Substance: DORZOLAMIDE HYDROCHLORIDE
     Indication: INTRAOCULAR PRESSURE INCREASED
     Dosage: 1 DROP, QD (IN THE MORNING), OD
     Route: 047
     Dates: end: 201808
  2. SAFLUTAN [Concomitant]
     Active Substance: TAFLUPROST
     Indication: INTRAOCULAR PRESSURE INCREASED
     Dosage: UNK

REACTIONS (8)
  - Blood pressure increased [Unknown]
  - Therapy cessation [Unknown]
  - Product availability issue [Unknown]
  - Eye irritation [Recovered/Resolved]
  - Intentional product misuse [Unknown]
  - Eye operation [Unknown]
  - Underdose [Unknown]
  - Inappropriate schedule of product administration [Unknown]
